FAERS Safety Report 26209176 (Version 2)
Quarter: 2025Q4

REPORT INFORMATION
  Report Type: Spontaneous
  Country: CN (occurrence: CN)
  Receive Date: 20251229
  Receipt Date: 20251231
  Transmission Date: 20260118
  Serious: Yes (Other)
  Sender: PURDUE
  Company Number: CN-NAPPMUNDI-GBR-2025-0131676

PATIENT
  Age: 59 Year
  Sex: Female

DRUGS (3)
  1. OXYCONTIN [Suspect]
     Active Substance: OXYCODONE HYDROCHLORIDE
     Indication: Lung neoplasm malignant
     Dosage: 20 MILLIGRAM, BID
     Route: 048
     Dates: start: 20251205, end: 20251216
  2. ACETAMINOPHEN\OXYCODONE HYDROCHLORIDE [Suspect]
     Active Substance: ACETAMINOPHEN\OXYCODONE HYDROCHLORIDE
     Indication: Lung neoplasm malignant
     Dosage: 1 TABLET, TID
     Route: 048
     Dates: start: 20251205, end: 20251211
  3. DALTEPARIN [Suspect]
     Active Substance: DALTEPARIN
     Indication: Lung neoplasm malignant
     Dosage: 1.000000,  A PIECE OF
     Route: 058
     Dates: start: 20251205, end: 20251212

REACTIONS (2)
  - Hepatic function abnormal [Unknown]
  - Drug-induced liver injury [Unknown]

NARRATIVE: CASE EVENT DATE: 20251201
